FAERS Safety Report 10664636 (Version 1)
Quarter: 2014Q4

REPORT INFORMATION
  Report Type: Spontaneous
  Country: US (occurrence: US)
  Receive Date: 20141219
  Receipt Date: 20141219
  Transmission Date: 20150529
  Serious: Yes (Other)
  Sender: FDA-Public Use
  Company Number: US-PFIZER INC-2014340410

PATIENT
  Age: 69 Year
  Sex: Female
  Weight: 73 kg

DRUGS (1)
  1. PREPARATION H NOS [Suspect]
     Active Substance: COCOA BUTTER\PETROLATUM\PHENYLEPHRINE HYDROCHLORIDE\PHENYLEPHRINE HYDROCHLORIDE OR MINERAL OIL
     Indication: HAEMORRHOIDS
     Dosage: SOME ON FINGER, TOPICALLY 2 TO 3 TIMES
     Route: 061
     Dates: start: 201412, end: 20141207

REACTIONS (7)
  - Crohn^s disease [Unknown]
  - Gastroenteritis viral [Unknown]
  - Back pain [Not Recovered/Not Resolved]
  - Infrequent bowel movements [Unknown]
  - Irritable bowel syndrome [Unknown]
  - Haematochezia [Not Recovered/Not Resolved]
  - Abdominal pain upper [Not Recovered/Not Resolved]

NARRATIVE: CASE EVENT DATE: 201412
